FAERS Safety Report 23398146 (Version 2)
Quarter: 2024Q1

REPORT INFORMATION
  Report Type: Spontaneous
  Country: CH (occurrence: CH)
  Receive Date: 20240112
  Receipt Date: 20240130
  Transmission Date: 20240410
  Serious: Yes (Other)
  Sender: FDA-Public Use
  Company Number: CH-TEVA-VS-3142086

PATIENT
  Age: 73 Year
  Sex: Male

DRUGS (1)
  1. PACLITAXEL [Suspect]
     Active Substance: PACLITAXEL
     Indication: Product used for unknown indication
     Dosage: DOSAGE: 6 MG/ML LIQUID, 30MG/5ML
     Route: 065
     Dates: end: 2023

REACTIONS (5)
  - Seizure [Unknown]
  - Oxygen saturation decreased [Unknown]
  - Dizziness [Unknown]
  - Feeling hot [Unknown]
  - Infusion related reaction [Unknown]

NARRATIVE: CASE EVENT DATE: 20231219
